FAERS Safety Report 8523608-0 (Version None)
Quarter: 2012Q3

REPORT INFORMATION
  Report Type: 
  Country: None (occurrence: None)
  Receive Date: 20120720
  Receipt Date: 20120711
  Transmission Date: 20120928
  Serious: Yes (Death, Life-Threatening)
  Sender: FDA-Public Use
  Company Number: JP-GENZYME-THYM-1002142

PATIENT
  Sex: Female
  Weight: 47 kg

DRUGS (34)
  1. OLMESARTAN MEDOXOMIL [Concomitant]
     Indication: HYPERTENSION
     Dosage: UNK
     Dates: start: 20100407, end: 20101030
  2. SULFAMETHOPRIM [Concomitant]
     Indication: INFECTION PROPHYLAXIS
     Dosage: UNK
     Dates: start: 20100414
  3. LEVOFLOXACIN [Concomitant]
     Indication: INFECTION PROPHYLAXIS
     Dosage: UNK
     Dates: start: 20100414, end: 20101030
  4. INSULIN DETEMIR [Concomitant]
     Dosage: UNK
     Dates: start: 20100428, end: 20100506
  5. PLATELETS, CONCENTRATED [Concomitant]
     Indication: APLASTIC ANAEMIA
     Dosage: UNK
     Dates: start: 20100408
  6. INSULIN ASPART [Concomitant]
     Indication: DIABETES MELLITUS
     Dosage: UNK
     Route: 065
     Dates: start: 20100317, end: 20100606
  7. INSULIN HUMAN [Concomitant]
     Indication: DIABETES MELLITUS
     Dosage: UNK
     Route: 065
     Dates: start: 20100508, end: 20100608
  8. MITIGLINIDE [Concomitant]
     Indication: DIABETES MELLITUS
     Dosage: UNK
     Route: 065
     Dates: start: 20100607, end: 20101027
  9. MAGNESIUM SULFATE [Concomitant]
     Indication: CONSTIPATION
     Dosage: UNK
     Route: 065
     Dates: start: 20100414, end: 20101030
  10. FLUCONAZOLE [Concomitant]
     Indication: INFECTION PROPHYLAXIS
     Dosage: UNK
     Dates: start: 20100414, end: 20101030
  11. INSULIN ASPART [Concomitant]
     Dosage: UNK
     Route: 065
     Dates: start: 20100609, end: 20100612
  12. GLIMEPIRIDE [Concomitant]
     Indication: DIABETES MELLITUS
     Dosage: UNK
     Route: 065
     Dates: start: 20100531, end: 20100531
  13. RED BLOOD CELLS, CONCENTRATED [Concomitant]
     Indication: APLASTIC ANAEMIA
     Dosage: UNK
     Dates: start: 20100408
  14. FILGRASTIM [Concomitant]
     Indication: APLASTIC ANAEMIA
     Dosage: UNK
     Dates: start: 20100414, end: 20100421
  15. FILGRASTIM [Concomitant]
     Dosage: UNK
     Dates: start: 20100503, end: 20100514
  16. FILGRASTIM [Concomitant]
     Dosage: UNK
     Dates: start: 20100519, end: 20100523
  17. TIZANIDINE HYDROCHLORIDE [Concomitant]
     Indication: PROPHYLAXIS
     Dosage: UNK
     Dates: start: 20101101, end: 20101105
  18. INSULIN ASPART [Concomitant]
     Dosage: UNK
     Dates: start: 20100613, end: 20100701
  19. INSULIN HUMAN [Concomitant]
     Dosage: UNK
     Dates: start: 20100613, end: 20101104
  20. FILGRASTIM [Concomitant]
     Dosage: UNK
     Dates: start: 20100426, end: 20100426
  21. FILGRASTIM [Concomitant]
     Dosage: UNK
     Dates: start: 20101028, end: 20101103
  22. ISOLEUCINE LEUCINE VALINE [Concomitant]
     Indication: CIRRHOSIS ALCOHOLIC
     Dosage: UNK
     Dates: end: 20101030
  23. AMLODIPINE BESYLATE [Concomitant]
     Indication: HYPERTENSION
     Dosage: UNK
     Dates: end: 20101030
  24. INSULIN DETEMIR [Concomitant]
     Indication: DIABETES MELLITUS
     Dosage: UNK
     Dates: start: 20100314, end: 20100411
  25. PIOGLITAZONE HYDROCHLORIDE [Concomitant]
     Indication: DIABETES MELLITUS
     Dosage: UNK
     Route: 065
     Dates: start: 20100531, end: 20101029
  26. THYMOGLOBULIN [Suspect]
     Indication: APLASTIC ANAEMIA
     Dosage: 175 MG, QD
     Route: 042
     Dates: start: 20100414, end: 20100418
  27. CYCLOSPORINE [Concomitant]
     Indication: APLASTIC ANAEMIA
     Dosage: UNK
     Dates: start: 20100414, end: 20101030
  28. EPLERENONE [Concomitant]
     Indication: HYPERTENSION
     Dosage: UNK
     Dates: end: 20100423
  29. METENOLONE [Concomitant]
     Indication: APLASTIC ANAEMIA
     Dosage: UNK
     Dates: start: 20100707, end: 20101030
  30. PREDNISOLONE [Concomitant]
     Indication: PREMEDICATION
     Dosage: UNK
     Dates: start: 20100419, end: 20100518
  31. METHYLPREDNISOLONE SODIUM SUCCINATE [Concomitant]
     Indication: PREMEDICATION
     Dosage: UNK
     Dates: start: 20100414, end: 20100416
  32. FILGRASTIM [Concomitant]
     Dosage: UNK
     Dates: start: 20100430, end: 20100430
  33. DEFERASIROX [Concomitant]
     Indication: HAEMOCHROMATOSIS
     Dosage: UNK
     Dates: start: 20101006, end: 20101030
  34. INSULIN ASPART [Concomitant]
     Dosage: UNK
     Dates: start: 20101027, end: 20101104

REACTIONS (7)
  - HYPOMAGNESAEMIA [None]
  - HYPERKALAEMIA [None]
  - PYREXIA [None]
  - OEDEMA [None]
  - PULMONARY CONGESTION [None]
  - INTERSTITIAL LUNG DISEASE [None]
  - RENAL FAILURE [None]
